FAERS Safety Report 10144393 (Version 2)
Quarter: 2014Q2

REPORT INFORMATION
  Report Type: Report from Study
  Country: US (occurrence: US)
  Receive Date: 20140430
  Receipt Date: 20140430
  Transmission Date: 20141212
  Serious: Yes (Death)
  Sender: FDA-Public Use
  Company Number: US-EXELIXIS-CABO-14004136

PATIENT
  Age: 72 Year
  Sex: Female

DRUGS (1)
  1. CABOZANTINIB [Suspect]
     Indication: COLON CANCER
     Dosage: 60 MG, QD
     Route: 048
     Dates: start: 20140327, end: 20140328

REACTIONS (3)
  - Death [Fatal]
  - Fatigue [Unknown]
  - Off label use [Unknown]
